FAERS Safety Report 4832104-3 (Version None)
Quarter: 2005Q4

REPORT INFORMATION
  Report Type: 
  Country: None (occurrence: None)
  Receive Date: 20051116
  Receipt Date: 20051107
  Transmission Date: 20060501
  Serious: Yes (Hospitalization)
  Sender: FDA-Public Use
  Company Number: 2005US001621

PATIENT
  Sex: Female

DRUGS (15)
  1. AMBISOME [Suspect]
     Indication: FUNGAL INFECTION
     Dosage: 3.00 MG/KG, UID/QD, IV NOS
     Route: 042
  2. MEROPENEM (MEROPENEM) [Concomitant]
  3. VANCOMYCIN [Concomitant]
  4. OMEPRAZOLE [Concomitant]
  5. CODEINE SUL TAB [Concomitant]
  6. LOPERAMIDE HCL [Concomitant]
  7. SPIRONOLACTONE [Concomitant]
  8. ACYCLOVIR [Concomitant]
  9. ISONIAZID [Concomitant]
  10. PYRAZINAMIDE [Concomitant]
  11. PIRITON (CHLORPHENAMINE MALEATE) [Concomitant]
  12. SEPTRA [Concomitant]
  13. CASPOFUNGIN (CASPOFUNGIN) [Concomitant]
  14. RITUXIMAB (RITUXIIMAB) [Concomitant]
  15. RIFAMPICIN [Concomitant]

REACTIONS (4)
  - HYPOKALAEMIA [None]
  - HYPOMAGNESAEMIA [None]
  - LYMPHOMA [None]
  - NEPHROGENIC DIABETES INSIPIDUS [None]
